FAERS Safety Report 12957742 (Version 1)
Quarter: 2016Q4

REPORT INFORMATION
  Report Type: Spontaneous
  Country: US (occurrence: US)
  Receive Date: 20161118
  Receipt Date: 20161118
  Transmission Date: 20170207
  Serious: Yes (Death, Other)
  Sender: FDA-Public Use
  Company Number: US-BRISTOL-MYERS SQUIBB COMPANY-BMS-2016-096988

PATIENT
  Sex: Male
  Weight: 75.26 kg

DRUGS (1)
  1. OPDIVO [Suspect]
     Active Substance: NIVOLUMAB
     Indication: LARYNGEAL CANCER
     Dosage: UNK
     Route: 065
     Dates: start: 20160726, end: 20160920

REACTIONS (2)
  - Product use issue [Unknown]
  - Death [Fatal]
